FAERS Safety Report 13753939 (Version 1)
Quarter: 2017Q3

REPORT INFORMATION
  Report Type: Report from Study
  Country: US (occurrence: US)
  Receive Date: 20170714
  Receipt Date: 20170714
  Transmission Date: 20171127
  Serious: Yes (Other)
  Sender: FDA-Public Use
  Company Number: US-ALLERGAN-1720477US

PATIENT
  Age: 54 Year
  Sex: Female

DRUGS (6)
  1. VILAZODONE HCL 10MG TAB [Suspect]
     Active Substance: VILAZODONE HYDROCHLORIDE
     Dosage: 20 MG, UNK
  2. NAPROXEN. [Concomitant]
     Active Substance: NAPROXEN
     Indication: PAIN
  3. VILAZODONE HCL 10MG TAB [Suspect]
     Active Substance: VILAZODONE HYDROCHLORIDE
     Dosage: 5 MG, UNK
     Dates: start: 201704
  4. VILAZODONE HCL 10MG TAB [Suspect]
     Active Substance: VILAZODONE HYDROCHLORIDE
     Dosage: 10 MG, UNK
  5. VILAZODONE HCL 10MG TAB [Suspect]
     Active Substance: VILAZODONE HYDROCHLORIDE
     Indication: DEPRESSION
     Dosage: 40 MG, UNK
     Dates: start: 201705, end: 20170614
  6. CYCLOBENZAPRINE. [Concomitant]
     Active Substance: CYCLOBENZAPRINE
     Indication: MUSCLE SPASMS

REACTIONS (3)
  - Hallucination [Recovered/Resolved]
  - Wrong technique in product usage process [Unknown]
  - Nightmare [Recovered/Resolved]

NARRATIVE: CASE EVENT DATE: 201705
